FAERS Safety Report 17874260 (Version 1)
Quarter: 2020Q2

REPORT INFORMATION
  Report Type: Spontaneous
  Country: US (occurrence: US)
  Receive Date: 20200609
  Receipt Date: 20200609
  Transmission Date: 20200714
  Serious: Yes (Death, Life-Threatening, Hospitalization, Other)
  Sender: FDA-Public Use
  Company Number: US-VELOXIS PHARMACEUTICALS-2020VELUS-000538

PATIENT
  Age: 59 Year
  Sex: Female

DRUGS (4)
  1. ENVARSUS XR [Interacting]
     Active Substance: TACROLIMUS
     Dosage: 1 DOSE OF TACROLIMUS WAS GIVEN AT 60% DOSE REDUCTION
     Dates: start: 202003
  2. MYCOPHENOLIC ACID. [Suspect]
     Active Substance: MYCOPHENOLIC ACID
     Indication: IMMUNOSUPPRESSANT DRUG THERAPY
     Dosage: 360 MG, Q12H
     Route: 065
     Dates: start: 2012
  3. LOPINAVIR + RITONAVIR [Interacting]
     Active Substance: LOPINAVIR\RITONAVIR
     Indication: COVID-19
     Dosage: LOPINAVIR/RITONAVIR 400 MG TWICE DAILY FOR 5 DAYS
     Dates: start: 202003, end: 202003
  4. ENVARSUS XR [Suspect]
     Active Substance: TACROLIMUS
     Indication: IMMUNOSUPPRESSANT DRUG THERAPY
     Dosage: 6 MG, Q12H
     Route: 065
     Dates: start: 2012, end: 202003

REACTIONS (10)
  - Acute respiratory distress syndrome [Fatal]
  - Respiratory failure [Fatal]
  - COVID-19 [Fatal]
  - Off label use [Unknown]
  - Renal failure [Fatal]
  - Immunosuppressant drug level increased [Unknown]
  - Drug interaction [Unknown]
  - Pneumocystis jirovecii pneumonia [Fatal]
  - Vasoplegia syndrome [Fatal]
  - Multiple organ dysfunction syndrome [Fatal]

NARRATIVE: CASE EVENT DATE: 202003
